FAERS Safety Report 21643534 (Version 1)
Quarter: 2022Q4

REPORT INFORMATION
  Report Type: Spontaneous
  Country: FR (occurrence: FR)
  Receive Date: 20221125
  Receipt Date: 20221125
  Transmission Date: 20230113
  Serious: Yes (Other)
  Sender: FDA-Public Use
  Company Number: None

PATIENT
  Age: 90 Year
  Sex: Female

DRUGS (7)
  1. OXYCODONE HYDROCHLORIDE [Suspect]
     Active Substance: OXYCODONE HYDROCHLORIDE
     Indication: Medication error
     Dosage: 10 MILLIGRAM
     Route: 048
     Dates: start: 20220926, end: 20220926
  2. ACETAMINOPHEN [Suspect]
     Active Substance: ACETAMINOPHEN
     Indication: Medication error
     Dosage: 1 GRAM
     Route: 048
     Dates: start: 20220926, end: 20220926
  3. LEVOTHYROXINE [Suspect]
     Active Substance: LEVOTHYROXINE
     Indication: Medication error
     Dosage: 1 DOSAGE FORM
     Route: 048
     Dates: start: 20220926, end: 20220926
  4. ZOLOFT [Suspect]
     Active Substance: SERTRALINE HYDROCHLORIDE
     Indication: Medication error
     Dosage: 1 DOSAGE FORM
     Route: 048
     Dates: start: 20220926, end: 20220926
  5. CLOPIDOGREL HYDROCHLORIDE [Suspect]
     Active Substance: CLOPIDOGREL HYDROCHLORIDE
     Indication: Medication error
     Dosage: 75 MILLIGRAM
     Route: 048
     Dates: start: 20220926, end: 20220926
  6. OXAZEPAM [Suspect]
     Active Substance: OXAZEPAM
     Indication: Medication error
     Dosage: 0.5 DOSAGE FORM
     Route: 048
     Dates: start: 20220926, end: 20220926
  7. PREGABALIN [Suspect]
     Active Substance: PREGABALIN
     Indication: Medication error
     Dosage: 100 MILLIGRAM
     Route: 048
     Dates: start: 20220926, end: 20220926

REACTIONS (4)
  - Oxygen saturation decreased [Recovered/Resolved]
  - Disturbance in attention [Recovered/Resolved]
  - Miosis [Recovered/Resolved]
  - Wrong patient [Recovered/Resolved]

NARRATIVE: CASE EVENT DATE: 20220926
